FAERS Safety Report 9498721 (Version 1)
Quarter: 2013Q3

REPORT INFORMATION
  Report Type: Report from Study
  Country: BR (occurrence: BR)
  Receive Date: 20130904
  Receipt Date: 20130904
  Transmission Date: 20140515
  Serious: Yes (Other)
  Sender: FDA-Public Use
  Company Number: BR-ABBOTT-13P-020-1141979-00

PATIENT
  Age: 54 Year
  Sex: Male
  Weight: 87 kg

DRUGS (7)
  1. HUMIRA [Suspect]
     Indication: ANKYLOSING SPONDYLITIS
     Route: 058
     Dates: start: 2009
  2. CAPTOPRIL [Concomitant]
     Indication: ANKYLOSING SPONDYLITIS
     Route: 048
     Dates: start: 2007
  3. VITAMIN B12 [Concomitant]
     Indication: RHEUMATIC DISORDER
     Route: 048
     Dates: start: 2006
  4. AMLODIPINE BESILATE [Concomitant]
     Indication: HYPERTENSION
     Route: 048
     Dates: start: 2006
  5. RANITIDINE + CYLOBENZAPRINE + INDOMETACIN [Concomitant]
     Indication: RHEUMATIC DISORDER
     Route: 048
     Dates: start: 2006
  6. RIVOTRIL [Concomitant]
     Indication: SLEEP DISORDER THERAPY
     Route: 048
     Dates: start: 201304
  7. HIDRAZIM [Concomitant]
     Indication: HYPERTENSION
     Route: 048
     Dates: start: 2007

REACTIONS (5)
  - Tendon rupture [Recovered/Resolved]
  - Internal fixation of spine [Recovering/Resolving]
  - Weight increased [Recovered/Resolved]
  - Weight decreased [Recovering/Resolving]
  - Anxiety [Unknown]
